FAERS Safety Report 5868895-2 (Version None)
Quarter: 2008Q3

REPORT INFORMATION
  Report Type: 
  Country: None (occurrence: None)
  Receive Date: 20080902
  Receipt Date: 20080902
  Transmission Date: 20090109
  Serious: Yes (Other)
  Sender: FDA-Public Use
  Company Number: None

PATIENT
  Age: 62 Year
  Sex: Female
  Weight: 52.1637 kg

DRUGS (2)
  1. FOSAMAX [Suspect]
     Indication: OSTEOPOROSIS
     Dosage: ONE TABLET EVERY WEEK
     Dates: start: 20031013, end: 20061101
  2. BONIVA [Suspect]
     Indication: OSTEOPOROSIS
     Dosage: ONE TABLET EVERY MONTH
     Dates: start: 20061101, end: 20080506

REACTIONS (2)
  - FIBULA FRACTURE [None]
  - STRESS FRACTURE [None]
